FAERS Safety Report 12430797 (Version 1)
Quarter: 2016Q2

REPORT INFORMATION
  Report Type: Spontaneous
  Country: BR (occurrence: BR)
  Receive Date: 20160602
  Receipt Date: 20160602
  Transmission Date: 20160815
  Serious: Yes (Death, Other)
  Sender: FDA-Public Use
  Company Number: BR-009507513-1606BRA000490

PATIENT
  Sex: Female

DRUGS (1)
  1. PEMBROLIZUMAB. [Suspect]
     Active Substance: PEMBROLIZUMAB
     Indication: SQUAMOUS CELL CARCINOMA OF LUNG
     Dosage: CYCLICAL, USED FOR 12 CYCLES

REACTIONS (6)
  - Gastrointestinal necrosis [Fatal]
  - Decreased appetite [Unknown]
  - Fatigue [Unknown]
  - Product use issue [Unknown]
  - Colitis [Unknown]
  - Abdominal pain [Unknown]
